FAERS Safety Report 4764005-3 (Version None)
Quarter: 2005Q3

REPORT INFORMATION
  Report Type: 
  Country: None (occurrence: None)
  Receive Date: 20050906
  Receipt Date: 20050825
  Transmission Date: 20060218
  Serious: Yes (Hospitalization, Other)
  Sender: FDA-Public Use
  Company Number: 2005121046

PATIENT
  Sex: Male

DRUGS (5)
  1. NORVASC [Suspect]
     Indication: HYPERTENSION
     Dosage: (ONCE DAIL) , ORAL
     Route: 048
     Dates: start: 19950101, end: 19960101
  2. UNSPECIFIED ANESTHESIA DRUG (ANAESTHETICS) [Concomitant]
  3. DIOVAN [Concomitant]
  4. AMARYL [Concomitant]
  5. RENAGEL [Concomitant]

REACTIONS (32)
  - ANAESTHESIA [None]
  - BLOOD PHOSPHORUS ABNORMAL [None]
  - BLOOD POTASSIUM INCREASED [None]
  - BLOOD PRESSURE FLUCTUATION [None]
  - BLOOD PRESSURE INCREASED [None]
  - BODY HEIGHT DECREASED [None]
  - BONE INFECTION [None]
  - CELLULITIS [None]
  - CEREBROVASCULAR ACCIDENT [None]
  - DEPRESSED LEVEL OF CONSCIOUSNESS [None]
  - DIABETES MELLITUS [None]
  - DIABETIC NEUROPATHY [None]
  - DIALYSIS [None]
  - DYSPNOEA [None]
  - FLUID RETENTION [None]
  - FOOT FRACTURE [None]
  - HEART RATE DECREASED [None]
  - INFLUENZA [None]
  - INTERMITTENT CLAUDICATION [None]
  - JOINT SWELLING [None]
  - LOSS OF CONSCIOUSNESS [None]
  - MALAISE [None]
  - MEDICATION ERROR [None]
  - MYOCARDIAL INFARCTION [None]
  - PAIN [None]
  - PHARMACEUTICAL PRODUCT COMPLAINT [None]
  - PROCEDURAL COMPLICATION [None]
  - RENAL FAILURE [None]
  - STENT OCCLUSION [None]
  - SURGICAL PROCEDURE REPEATED [None]
  - VOMITING [None]
  - WEIGHT DECREASED [None]
